FAERS Safety Report 23654140 (Version 1)
Quarter: 2024Q1

REPORT INFORMATION
  Report Type: Spontaneous
  Country: US (occurrence: US)
  Receive Date: 20240320
  Receipt Date: 20240320
  Transmission Date: 20240410
  Serious: No
  Sender: FDA-Public Use
  Company Number: US-PFIZER INC-202400067937

PATIENT
  Age: 67 Year
  Sex: Female

DRUGS (2)
  1. PAXLOVID [Suspect]
     Active Substance: NIRMATRELVIR\RITONAVIR
     Indication: COVID-19 treatment
     Dates: start: 20231002, end: 20231004
  2. CELEBREX [Concomitant]
     Active Substance: CELECOXIB

REACTIONS (5)
  - Diarrhoea [Unknown]
  - Vomiting [Unknown]
  - Nausea [Unknown]
  - Disease recurrence [Unknown]
  - COVID-19 [Unknown]

NARRATIVE: CASE EVENT DATE: 20231001
